FAERS Safety Report 10047910 (Version 1)
Quarter: 2014Q1

REPORT INFORMATION
  Report Type: Report from Study
  Country: US (occurrence: US)
  Receive Date: 20140331
  Receipt Date: 20140331
  Transmission Date: 20141002
  Serious: Yes (Other)
  Sender: FDA-Public Use
  Company Number: US-ABBVIE-14P-163-1215459-00

PATIENT
  Age: 53 Year
  Sex: Female
  Weight: 106.24 kg

DRUGS (5)
  1. HUMIRA [Suspect]
     Indication: RHEUMATOID ARTHRITIS
     Dates: start: 2006, end: 201211
  2. WELLBUTRIN [Suspect]
     Indication: DEPRESSION
  3. ARAVA [Suspect]
     Indication: PRODUCT USED FOR UNKNOWN INDICATION
  4. FOLIC ACID [Concomitant]
     Indication: PRODUCT USED FOR UNKNOWN INDICATION
  5. PLAQUENIL [Concomitant]
     Indication: PRODUCT USED FOR UNKNOWN INDICATION

REACTIONS (6)
  - Atrial fibrillation [Recovered/Resolved]
  - Red blood cell count abnormal [Recovered/Resolved]
  - Rectal haemorrhage [Recovered/Resolved]
  - Abdominal hernia [Not Recovered/Not Resolved]
  - Anal fissure [Recovered/Resolved]
  - Dyspnoea [Recovered/Resolved]
